FAERS Safety Report 16980001 (Version 1)
Quarter: 2019Q4

REPORT INFORMATION
  Report Type: Spontaneous
  Country: FR (occurrence: FR)
  Receive Date: 20191031
  Receipt Date: 20191031
  Transmission Date: 20200122
  Serious: Yes (Hospitalization)
  Sender: FDA-Public Use
  Company Number: FR-PFIZER INC-2019466686

PATIENT
  Age: 14 Year
  Sex: Female

DRUGS (6)
  1. BACTRIM [Suspect]
     Active Substance: SULFAMETHOXAZOLE\TRIMETHOPRIM
     Indication: INFECTION PROPHYLAXIS
     Dosage: 3 DF, WEEKLY
     Route: 048
     Dates: end: 20180905
  2. ORACILLINE [PHENOXYMETHYLPENICILLIN BENZATHINE] [Concomitant]
     Active Substance: PENICILLIN V BENZATHINE
     Dosage: 2 DF, DAILY
     Route: 048
     Dates: start: 201711
  3. ZELITREX [Concomitant]
     Active Substance: VALACYCLOVIR HYDROCHLORIDE
     Dosage: 2 DF, 1X/DAY
     Route: 048
     Dates: start: 201711
  4. SMECTA [Concomitant]
     Active Substance: MONTMORILLONITE
     Dosage: 6 G, 1X/DAY
     Route: 048
  5. VFEND [Suspect]
     Active Substance: VORICONAZOLE
     Indication: ASPERGILLUS INFECTION
     Dosage: 600 MG, 1X/DAY
     Route: 048
     Dates: start: 20180803, end: 20180907
  6. NEXAVAR [Suspect]
     Active Substance: SORAFENIB
     Indication: GENE MUTATION
     Dosage: 4 DF, DAILY
     Route: 048
     Dates: start: 201803

REACTIONS (4)
  - Product use issue [Unknown]
  - Gamma-glutamyltransferase increased [Recovering/Resolving]
  - Off label use [Unknown]
  - Transaminases increased [Recovered/Resolved]

NARRATIVE: CASE EVENT DATE: 20180820
